FAERS Safety Report 10053298 (Version 1)
Quarter: 2014Q2

REPORT INFORMATION
  Report Type: Spontaneous
  Country: IT (occurrence: IT)
  Receive Date: 20140402
  Receipt Date: 20140402
  Transmission Date: 20141212
  Serious: Yes (Hospitalization)
  Sender: FDA-Public Use
  Company Number: IT-TEVA-472537ISR

PATIENT
  Age: 62 Year
  Sex: Female
  Weight: 89 kg

DRUGS (8)
  1. CARBOLITHIUM [Suspect]
     Indication: BIPOLAR DISORDER
     Dosage: 4 DOSAGE FORMS DAILY;
     Route: 048
     Dates: start: 20140109, end: 20140118
  2. DELAPRIDE [Interacting]
     Indication: HYPERTENSION
     Dosage: 1 DOSAGE FORMS DAILY;
     Route: 048
     Dates: start: 20130701, end: 20140118
  3. SIMVASTATIN [Concomitant]
     Indication: DYSLIPIDAEMIA
     Dosage: 40 MILLIGRAM DAILY;
     Route: 048
  4. SEROQUEL 200 MG [Concomitant]
     Indication: BIPOLAR DISORDER
     Dosage: 1 DOSAGE FORMS DAILY;
     Route: 048
  5. PANTORC 20 MG [Concomitant]
     Indication: GASTRITIS
     Dosage: 1 DOSAGE FORMS DAILY;
     Route: 048
  6. ZYPREXA 5MG [Concomitant]
     Indication: BIPOLAR DISORDER
     Dosage: 1 DOSAGE FORMS DAILY;
     Route: 048
  7. EFEXOR 37.5 MG [Concomitant]
     Dosage: 1 DOSAGE FORMS DAILY;
     Route: 048
  8. PRONTINAL [Concomitant]
     Indication: ASTHMA
     Dosage: 1 DOSAGE FORMS DAILY;

REACTIONS (9)
  - Bradykinesia [Recovered/Resolved]
  - Confusional state [Recovered/Resolved]
  - Drug interaction [Recovered/Resolved]
  - Renal impairment [Recovered/Resolved]
  - Toxicity to various agents [Recovered/Resolved]
  - Irritability [Recovered/Resolved]
  - Nausea [Recovered/Resolved]
  - Drug prescribing error [Recovered/Resolved]
  - Disorientation [Recovered/Resolved]
